FAERS Safety Report 11579066 (Version 1)
Quarter: 2015Q3

REPORT INFORMATION
  Report Type: Spontaneous
  Country: JP (occurrence: JP)
  Receive Date: 20150930
  Receipt Date: 20150930
  Transmission Date: 20151125
  Serious: Yes (Death, Other)
  Sender: FDA-Public Use
  Company Number: JP-BAYER-2015-315446

PATIENT
  Sex: Male

DRUGS (8)
  1. WARFARIN [Concomitant]
     Active Substance: WARFARIN
     Dosage: DAILY DOSE .5 MG
     Route: 048
     Dates: start: 20150421, end: 20150625
  2. STIVARGA [Suspect]
     Active Substance: REGORAFENIB
     Indication: RECTAL CANCER
     Dosage: 160MG DAILY
     Route: 048
     Dates: start: 20150512, end: 20150601
  3. AMLODIPINE [Concomitant]
     Active Substance: AMLODIPINE BESYLATE
     Dosage: DAILY DOSE 5 MG
     Route: 048
     Dates: start: 20150421, end: 20150819
  4. STIVARGA [Suspect]
     Active Substance: REGORAFENIB
     Indication: RECTAL CANCER
     Dosage: 120MG DAILY
     Route: 048
     Dates: start: 20150609, end: 20150629
  5. STIVARGA [Suspect]
     Active Substance: REGORAFENIB
     Indication: RECTAL CANCER
     Dosage: 160 MG, QD 3 WEEKS ON, 1 WEEK OFF
     Route: 048
     Dates: start: 20150421
  6. OMEPRAZOLE. [Concomitant]
     Active Substance: OMEPRAZOLE
     Dosage: DAILY DOSE 10 MG
     Route: 048
     Dates: start: 20150421, end: 20150819
  7. STIVARGA [Suspect]
     Active Substance: REGORAFENIB
     Indication: RECTAL CANCER
     Dosage: 120MG DAILY
     Route: 048
     Dates: start: 20150711, end: 20150731
  8. STIVARGA [Suspect]
     Active Substance: REGORAFENIB
     Indication: RECTAL CANCER
     Dosage: 120MG DAILY
     Route: 048
     Dates: start: 20150815, end: 20150819

REACTIONS (8)
  - Dyspnoea [Fatal]
  - Proteinuria [Recovering/Resolving]
  - Palmar-plantar erythrodysaesthesia syndrome [Recovering/Resolving]
  - Diarrhoea [Recovered/Resolved]
  - Rectal cancer [Fatal]
  - Dizziness [Recovering/Resolving]
  - Hypoproteinaemia [Recovering/Resolving]
  - Pleural effusion [Fatal]

NARRATIVE: CASE EVENT DATE: 201504
